FAERS Safety Report 8305662-4 (Version None)
Quarter: 2012Q2

REPORT INFORMATION
  Report Type: 
  Country: None (occurrence: None)
  Receive Date: 20120423
  Receipt Date: 20120419
  Transmission Date: 20120825
  Serious: Yes (Other)
  Sender: FDA-Public Use
  Company Number: CH-PFIZER INC-2012096860

PATIENT
  Age: 65 Year
  Sex: Male

DRUGS (11)
  1. CIPROFLOXACIN [Suspect]
     Indication: INTERVERTEBRAL DISCITIS
     Dosage: UNK
     Route: 048
     Dates: start: 20111101
  2. RIMACTANE [Suspect]
     Indication: INTERVERTEBRAL DISCITIS
     Dosage: UNK
     Route: 048
     Dates: start: 20111101
  3. FLOXAPEN [Concomitant]
     Indication: INTERVERTEBRAL DISCITIS
     Dosage: UNK
     Dates: start: 20111101, end: 20111101
  4. ALDACTONE [Suspect]
     Dosage: UNK
     Route: 048
     Dates: start: 20111101
  5. NEXIUM [Concomitant]
     Dosage: UNK
     Route: 048
     Dates: start: 20111101, end: 20111101
  6. SCOPOLAMINE [Suspect]
     Dosage: UNK
     Route: 048
     Dates: start: 20111101
  7. CLINDAMYCIN HCL [Concomitant]
     Indication: INTERVERTEBRAL DISCITIS
     Dosage: UNK
     Dates: start: 20111101, end: 20111101
  8. MIACALCIN [Concomitant]
     Dosage: UNK
     Dates: start: 20111101, end: 20111101
  9. ENALAPRIL MALEATE [Concomitant]
     Indication: ESSENTIAL HYPERTENSION
     Dosage: UNK
     Route: 048
     Dates: start: 20111101, end: 20111101
  10. ALBUMIN HUMAN [Concomitant]
     Dosage: UNK
     Route: 041
     Dates: start: 20111101, end: 20111101
  11. ECONAZOLE NITRATE [Concomitant]
     Dosage: UNK
     Route: 062
     Dates: start: 20111101, end: 20111101

REACTIONS (1)
  - ECZEMA [None]
